FAERS Safety Report 9543399 (Version 1)
Quarter: 2013Q3

REPORT INFORMATION
  Report Type: Spontaneous
  Country: US (occurrence: US)
  Receive Date: 20130923
  Receipt Date: 20130923
  Transmission Date: 20140515
  Serious: Yes (Other)
  Sender: FDA-Public Use
  Company Number: US-PFIZER INC-2013272724

PATIENT
  Age: 80 Year
  Sex: Female
  Weight: 117 kg

DRUGS (7)
  1. GABAPENTIN [Suspect]
     Indication: NEUROPATHY PERIPHERAL
     Dosage: (100MG IN MORNING, 100MG IN AFTERNOON AND 300MG AT NIGHT) UNK, 3X/DAY
     Route: 048
  2. LOSARTAN POTASSIUM [Suspect]
     Indication: DIVERTICULUM
     Dosage: UNK
  3. PREDNISONE [Suspect]
     Indication: MYALGIA
     Dosage: UNK
     Route: 048
  4. PREDNISONE [Suspect]
     Dosage: 60 MG, UNK
     Route: 048
     Dates: start: 201301
  5. PREDNISONE [Suspect]
     Dosage: 5 MG, UNK
     Route: 048
     Dates: start: 201309
  6. SEPTRA [Suspect]
     Indication: DIVERTICULUM
     Dosage: UNK
  7. FISH OIL [Concomitant]
     Dosage: UNK

REACTIONS (8)
  - Off label use [Unknown]
  - Blindness unilateral [Unknown]
  - Arterial occlusive disease [Unknown]
  - Ocular vascular disorder [Unknown]
  - Weight increased [Unknown]
  - Blood pressure increased [Unknown]
  - Renal disorder [Unknown]
  - Drug ineffective [Unknown]
